FAERS Safety Report 17834606 (Version 1)
Quarter: 2020Q2

REPORT INFORMATION
  Report Type: Spontaneous
  Country: ES (occurrence: ES)
  Receive Date: 20200528
  Receipt Date: 20200528
  Transmission Date: 20200714
  Serious: Yes (Hospitalization)
  Sender: FDA-Public Use
  Company Number: ES-MACLEODS PHARMACEUTICALS US LTD-MAC2020026604

PATIENT

DRUGS (1)
  1. OLMESARTAN 40MG [Suspect]
     Active Substance: OLMESARTAN
     Indication: PRODUCT USED FOR UNKNOWN INDICATION
     Dosage: 40 MILLIGRAM
     Route: 065

REACTIONS (6)
  - Tremor [Recovered/Resolved]
  - Balance disorder [Recovered/Resolved]
  - Hypocalcaemia [Recovered/Resolved]
  - Enteritis [Recovered/Resolved]
  - Hypomagnesaemia [Recovered/Resolved]
  - Dizziness [Recovered/Resolved]
